FAERS Safety Report 8281045-0 (Version None)
Quarter: 2012Q2

REPORT INFORMATION
  Report Type: 
  Country: None (occurrence: None)
  Receive Date: 20120412
  Receipt Date: 20120323
  Transmission Date: 20120825
  Serious: Yes (Death)
  Sender: FDA-Public Use
  Company Number: DK-BAXTER-2012BAX000817

PATIENT
  Age: 29 Year
  Sex: Male

DRUGS (4)
  1. SUCCINYLCHOLINE CHLORIDE [Concomitant]
  2. ISOFLURAN BAXTER [Suspect]
     Indication: MAINTENANCE OF ANAESTHESIA
  3. ATROPINE [Concomitant]
  4. THIOPENTAL SODIUM [Concomitant]

REACTIONS (1)
  - HYPERTHERMIA MALIGNANT [None]
